FAERS Safety Report 19432518 (Version 4)
Quarter: 2023Q2

REPORT INFORMATION
  Report Type: Report from Study
  Country: JP (occurrence: JP)
  Receive Date: 20210617
  Receipt Date: 20230630
  Transmission Date: 20230721
  Serious: Yes (Other)
  Sender: FDA-Public Use
  Company Number: JP-EISAI-202102391_HAL-IIS_P_1

PATIENT
  Age: 72 Year
  Sex: Female
  Weight: 48 kg

DRUGS (8)
  1. ERIBULIN [Suspect]
     Active Substance: ERIBULIN
     Indication: Breast cancer recurrent
     Dosage: DOSE AND FREQUENCY UNKNOWN
     Route: 041
     Dates: start: 20190306, end: 201903
  2. ERIBULIN [Suspect]
     Active Substance: ERIBULIN
     Route: 041
     Dates: start: 20190311
  3. METHYLCOBALAMIN [Concomitant]
     Active Substance: METHYLCOBALAMIN
     Indication: Hypoaesthesia
     Route: 048
  4. SODIUM FERROUS CITRATE [Concomitant]
     Active Substance: SODIUM FERROUS CITRATE
     Indication: Anaemia
     Route: 048
  5. CALCIUM CARBONATE\CHOLECALCIFEROL\MAGNESIUM CARBONATE [Concomitant]
     Active Substance: CALCIUM CARBONATE\CHOLECALCIFEROL\MAGNESIUM CARBONATE
     Indication: Osteoporosis
     Dosage: DOSE UNKNOWN
     Route: 048
  6. PREGABALIN [Concomitant]
     Active Substance: PREGABALIN
     Indication: Oral pain
     Route: 048
     Dates: start: 20210419
  7. TSUMURA GOSHAJINKIGAN EXTRACT GRANULES FOR ETHICAL USE [Concomitant]
     Indication: Back pain
  8. TSUMURA GOSHAJINKIGAN EXTRACT GRANULES FOR ETHICAL USE [Concomitant]
     Indication: Hypoaesthesia

REACTIONS (4)
  - Neutropenia [Recovered/Resolved]
  - Leukopenia [Recovered/Resolved]
  - White blood cell count decreased [Recovered/Resolved]
  - Anaemia [Recovering/Resolving]

NARRATIVE: CASE EVENT DATE: 20190617
